FAERS Safety Report 22029774 (Version 1)
Quarter: 2023Q1

REPORT INFORMATION
  Report Type: Spontaneous
  Country: US (occurrence: US)
  Receive Date: 20230223
  Receipt Date: 20230223
  Transmission Date: 20230417
  Serious: No
  Sender: FDA-Public Use
  Company Number: US-BIOGEN-2023BI01189707

PATIENT
  Sex: Male

DRUGS (20)
  1. AVONEX [Suspect]
     Active Substance: INTERFERON BETA-1A
     Indication: Multiple sclerosis
     Route: 050
  2. AVONEX [Suspect]
     Active Substance: INTERFERON BETA-1A
  3. AVONEX [Suspect]
     Active Substance: INTERFERON BETA-1A
  4. AVONEX [Suspect]
     Active Substance: INTERFERON BETA-1A
  5. AVONEX [Suspect]
     Active Substance: INTERFERON BETA-1A
  6. AVONEX [Suspect]
     Active Substance: INTERFERON BETA-1A
  7. AVONEX [Suspect]
     Active Substance: INTERFERON BETA-1A
  8. AVONEX [Suspect]
     Active Substance: INTERFERON BETA-1A
  9. AVONEX [Suspect]
     Active Substance: INTERFERON BETA-1A
  10. AVONEX [Suspect]
     Active Substance: INTERFERON BETA-1A
  11. AVONEX [Suspect]
     Active Substance: INTERFERON BETA-1A
  12. AVONEX [Suspect]
     Active Substance: INTERFERON BETA-1A
  13. AVONEX [Suspect]
     Active Substance: INTERFERON BETA-1A
  14. ZINC [Concomitant]
     Active Substance: ZINC
     Route: 050
  15. VITAMIN D3 [Concomitant]
     Active Substance: CHOLECALCIFEROL
     Route: 050
  16. VITAMIN C [Concomitant]
     Active Substance: ASCORBIC ACID
     Route: 050
  17. CARVEDILOL [Concomitant]
     Active Substance: CARVEDILOL
     Route: 050
  18. FUROSEMIDE [Concomitant]
     Active Substance: FUROSEMIDE
     Route: 050
  19. LISINOPRIL [Concomitant]
     Active Substance: LISINOPRIL
     Route: 050
  20. ALDACTONE [Concomitant]
     Active Substance: SPIRONOLACTONE
     Route: 050

REACTIONS (3)
  - Tremor [Unknown]
  - Headache [Unknown]
  - Oedema [Unknown]
